FAERS Safety Report 5148861-5 (Version None)
Quarter: 2006Q4

REPORT INFORMATION
  Report Type: 
  Country: None (occurrence: None)
  Receive Date: 20061113
  Receipt Date: 20060920
  Transmission Date: 20070319
  Serious: Yes (Death, Life-Threatening, Hospitalization)
  Sender: FDA-Public Use
  Company Number: PL-BAYER-200614218GDS

PATIENT
  Age: 52 Year
  Sex: Male
  Weight: 59 kg

DRUGS (13)
  1. SORAFENIB [Suspect]
     Indication: RENAL CELL CARCINOMA STAGE UNSPECIFIED
     Dosage: TOTAL DAILY DOSE: 800 MG
     Route: 048
     Dates: start: 20060714
  2. DEXAMETHASONE TAB [Concomitant]
     Indication: METASTASIS
     Route: 048
     Dates: start: 20050101
  3. DEXAMETHASONE TAB [Concomitant]
     Route: 065
     Dates: start: 20050705
  4. FUROSEMIDE [Concomitant]
     Indication: METASTASES TO CENTRAL NERVOUS SYSTEM
     Route: 048
     Dates: start: 20050705
  5. KALDYUM [Concomitant]
     Indication: METASTASES TO CENTRAL NERVOUS SYSTEM
     Route: 048
     Dates: start: 20050101
  6. KALDYUM [Concomitant]
     Route: 065
     Dates: start: 20050705
  7. OMEPRAZOLE [Concomitant]
     Indication: METASTASES TO CENTRAL NERVOUS SYSTEM
     Route: 065
     Dates: start: 20050705
  8. ZOFRAN [Concomitant]
     Indication: PROPHYLAXIS OF NAUSEA AND VOMITING
     Route: 065
     Dates: start: 20060118, end: 20060118
  9. GASEC [Concomitant]
     Indication: GASTROOESOPHAGEAL REFLUX PROPHYLAXIS
     Route: 065
     Dates: start: 20060103
  10. SODIUM CHLORIDE 0.9% [Concomitant]
     Indication: PROPHYLAXIS AGAINST DEHYDRATION
     Route: 042
     Dates: start: 20060901
  11. FRAXIPARINE [Concomitant]
     Indication: THROMBOSIS PROPHYLAXIS
     Route: 058
     Dates: start: 20060901
  12. MORPHINE [Concomitant]
     Indication: METASTASIS
     Route: 058
     Dates: start: 20060901
  13. PARAFFIN [Concomitant]
     Indication: CONSTIPATION PROPHYLAXIS
     Route: 048
     Dates: start: 20060901

REACTIONS (6)
  - ANAEMIA [None]
  - DIZZINESS [None]
  - HYPOALBUMINAEMIA [None]
  - METASTATIC RENAL CELL CARCINOMA [None]
  - PALMAR-PLANTAR ERYTHRODYSAESTHESIA SYNDROME [None]
  - WEIGHT DECREASED [None]
